FAERS Safety Report 9058769 (Version 2)
Quarter: 2013Q1

REPORT INFORMATION
  Report Type: Report from Study
  Country: DE (occurrence: DE)
  Receive Date: 20130204
  Receipt Date: 20130225
  Transmission Date: 20140127
  Serious: Yes (Life-Threatening)
  Sender: FDA-Public Use
  Company Number: DE-GLAXOSMITHKLINE-Z0017618A

PATIENT
  Age: 45 None
  Sex: Male
  Weight: 66.5 kg

DRUGS (5)
  1. OFATUMUMAB [Suspect]
     Indication: NON-HODGKIN^S LYMPHOMA
     Dosage: 1000MG CYCLIC
     Route: 042
     Dates: start: 20120703
  2. BENDAMUSTINE [Suspect]
     Indication: NON-HODGKIN^S LYMPHOMA
     Dosage: 90MGM2 CYCLIC
     Route: 042
     Dates: start: 20120703
  3. CIPROFLOXACIN [Concomitant]
  4. SULTAMICILLIN [Concomitant]
  5. FILGRASTIM [Concomitant]

REACTIONS (1)
  - Neutrophil count decreased [Recovered/Resolved]
